FAERS Safety Report 7221978-7 (Version None)
Quarter: 2011Q1

REPORT INFORMATION
  Report Type: 
  Country: None (occurrence: None)
  Receive Date: 20110112
  Receipt Date: 20110107
  Transmission Date: 20110831
  Serious: Yes (Hospitalization)
  Sender: FDA-Public Use
  Company Number: B0693252A

PATIENT
  Sex: Male

DRUGS (2)
  1. ZIMOX [Concomitant]
  2. AUGMENTIN '125' [Suspect]
     Route: 048
     Dates: start: 20101230

REACTIONS (7)
  - ABDOMINAL PAIN [None]
  - DIARRHOEA [None]
  - TREMOR [None]
  - URTICARIA [None]
  - VOMITING [None]
  - HYPERHIDROSIS [None]
  - HYPOTONIA [None]
